FAERS Safety Report 5463563-3 (Version None)
Quarter: 2007Q3

REPORT INFORMATION
  Report Type: 
  Country: None (occurrence: None)
  Receive Date: 20070919
  Receipt Date: 20070910
  Transmission Date: 20080115
  Serious: Yes (Other)
  Sender: FDA-Public Use
  Company Number: 163-20785-06111358

PATIENT
  Age: 42 Year
  Sex: Female

DRUGS (3)
  1. THALOMID [Suspect]
     Indication: MULTIPLE MYELOMA
     Dosage: 200 MG, QD, ORAL 400 MG, QD, ORAL
     Route: 048
     Dates: start: 20031101, end: 20031201
  2. THALOMID [Suspect]
     Indication: MULTIPLE MYELOMA
     Dosage: 200 MG, QD, ORAL 400 MG, QD, ORAL
     Route: 048
     Dates: start: 20060201, end: 20061130
  3. THALOMID [Suspect]
     Indication: MULTIPLE MYELOMA
     Dosage: 200 MG, QD, ORAL 400 MG, QD, ORAL
     Route: 048
     Dates: start: 20061201

REACTIONS (3)
  - BLOOD HUMAN CHORIONIC GONADOTROPIN INCREASED [None]
  - PULMONARY MASS [None]
  - RENAL MASS [None]
